FAERS Safety Report 16877082 (Version 1)
Quarter: 2019Q4

REPORT INFORMATION
  Report Type: Report from Study
  Country: US (occurrence: US)
  Receive Date: 20191002
  Receipt Date: 20191002
  Transmission Date: 20200122
  Serious: Yes (Other)
  Sender: FDA-Public Use
  Company Number: US-JNJFOC-20190938076

PATIENT
  Sex: Male

DRUGS (10)
  1. ATORVASTATIN CALCIUM. [Concomitant]
     Active Substance: ATORVASTATIN CALCIUM
  2. WARFARIN SODIUM. [Concomitant]
     Active Substance: WARFARIN SODIUM
  3. LEUKERAN [Concomitant]
     Active Substance: CHLORAMBUCIL
  4. MELOXICAM. [Concomitant]
     Active Substance: MELOXICAM
  5. FISH OIL [Concomitant]
     Active Substance: FISH OIL
  6. OMEGA-3                            /01866101/ [Concomitant]
     Active Substance: OMEGA-3 FATTY ACIDS
  7. CILOSTAZOL. [Concomitant]
     Active Substance: CILOSTAZOL
  8. PANTOPRAZOLE SODIUM. [Concomitant]
     Active Substance: PANTOPRAZOLE SODIUM
  9. IMBRUVICA [Suspect]
     Active Substance: IBRUTINIB
     Indication: CHRONIC LYMPHOCYTIC LEUKAEMIA
     Dosage: 420 MG, QD
     Route: 048
  10. CARAFATE [Concomitant]
     Active Substance: SUCRALFATE

REACTIONS (1)
  - Bladder neoplasm [Unknown]
